FAERS Safety Report 13705948 (Version 1)
Quarter: 2017Q2

REPORT INFORMATION
  Report Type: Spontaneous
  Country: US (occurrence: US)
  Receive Date: 20170630
  Receipt Date: 20170630
  Transmission Date: 20170830
  Serious: No
  Sender: FDA-Public Use
  Company Number: US-PFIZER INC-2017283726

PATIENT
  Age: 52 Year
  Sex: Female
  Weight: 81.65 kg

DRUGS (1)
  1. PRISTIQ EXTENDED-RELEASE [Suspect]
     Active Substance: DESVENLAFAXINE SUCCINATE
     Indication: DEPRESSION
     Dosage: 100 MG, 1X/DAY
     Route: 048
     Dates: end: 20170624

REACTIONS (5)
  - Feeling abnormal [Unknown]
  - Crying [Unknown]
  - Drug dose omission [Not Recovered/Not Resolved]
  - Malaise [Unknown]
  - Nervousness [Unknown]
